FAERS Safety Report 8917580 (Version 1)
Quarter: 2012Q4

REPORT INFORMATION
  Report Type: 
  Country: US (occurrence: US)
  Receive Date: 20121120
  Receipt Date: 20121120
  Transmission Date: 20130627
  Serious: No
  Sender: FDA-Public Use
  Company Number: US-009507513-1211USA007038

PATIENT
  Sex: Male

DRUGS (2)
  1. DULERA [Suspect]
     Indication: DYSPNOEA
     Dosage: 1 puff twice daily
     Route: 055
     Dates: start: 201209
  2. FINASTERIDE [Concomitant]
     Route: 048

REACTIONS (4)
  - Rash [Not Recovered/Not Resolved]
  - Erythema [Not Recovered/Not Resolved]
  - Skin swelling [Not Recovered/Not Resolved]
  - Drug ineffective [Unknown]
